FAERS Safety Report 16692533 (Version 14)
Quarter: 2022Q4

REPORT INFORMATION
  Report Type: Spontaneous
  Country: US (occurrence: US)
  Receive Date: 20190812
  Receipt Date: 20221114
  Transmission Date: 20230112
  Serious: Yes (Other)
  Sender: FDA-Public Use
  Company Number: US-PFIZER INC-2019339262

PATIENT
  Age: 64 Year
  Sex: Male
  Weight: 119.75 kg

DRUGS (7)
  1. CAVERJECT [Suspect]
     Active Substance: ALPROSTADIL
     Indication: Cerebrovascular accident
     Dosage: 40 MG, WEEKLY
  2. CAVERJECT [Suspect]
     Active Substance: ALPROSTADIL
     Indication: Sexual dysfunction
     Dosage: 20 UG, WEEKLY
  3. CAVERJECT [Suspect]
     Active Substance: ALPROSTADIL
     Dosage: 20 MG, WEEKLY
  4. CAVERJECT [Suspect]
     Active Substance: ALPROSTADIL
     Dosage: RECONSTITUTED ALPROSTADIL OF 20MCG WITH 7CC OF WATER AND THEN ONLY USES 1 CC^
  5. CAVERJECT [Suspect]
     Active Substance: ALPROSTADIL
     Dosage: 40 MG
  6. CAVERJECT [Suspect]
     Active Substance: ALPROSTADIL
     Dosage: 40 UG
  7. METFORMIN [Concomitant]
     Active Substance: METFORMIN HYDROCHLORIDE
     Indication: Diabetes mellitus
     Dosage: 500 MG

REACTIONS (9)
  - Drug dependence [Unknown]
  - Erection increased [Unknown]
  - Ejaculation failure [Unknown]
  - Muscular weakness [Unknown]
  - Memory impairment [Unknown]
  - Body height increased [Unknown]
  - Weight decreased [Unknown]
  - Wrong technique in product usage process [Unknown]
  - Product dispensing error [Unknown]
